FAERS Safety Report 17598013 (Version 2)
Quarter: 2020Q2

REPORT INFORMATION
  Report Type: Spontaneous
  Country: US (occurrence: US)
  Receive Date: 20200330
  Receipt Date: 20200407
  Transmission Date: 20200713
  Serious: No
  Sender: FDA-Public Use
  Company Number: US-PFIZER INC-2020124834

PATIENT
  Age: 63 Year
  Sex: Male
  Weight: 70.75 kg

DRUGS (3)
  1. LYRICA [Suspect]
     Active Substance: PREGABALIN
     Indication: SPINAL OPERATION
     Dosage: 225 MG, 2X/DAY
     Route: 048
  2. LYRICA [Suspect]
     Active Substance: PREGABALIN
     Indication: LIMB DISCOMFORT
  3. LYRICA [Suspect]
     Active Substance: PREGABALIN
     Indication: MUSCULOSKELETAL DISCOMFORT

REACTIONS (5)
  - Off label use [Unknown]
  - Abdominal pain upper [Unknown]
  - Influenza like illness [Unknown]
  - Headache [Unknown]
  - Product use in unapproved indication [Unknown]
